FAERS Safety Report 4741584-3 (Version None)
Quarter: 2005Q3

REPORT INFORMATION
  Report Type: 
  Country: None (occurrence: None)
  Receive Date: 20050801
  Receipt Date: 20050627
  Transmission Date: 20060218
  Serious: No
  Sender: FDA-Public Use
  Company Number: 2005PV000161

PATIENT
  Age: 73 Year
  Sex: Female
  Weight: 68.0396 kg

DRUGS (6)
  1. BYETTA [Suspect]
     Dosage: 5 UG;BID;SC
     Route: 058
     Dates: start: 20050611
  2. AVANDIA [Concomitant]
  3. PLENDIL [Concomitant]
  4. LIPITOR [Concomitant]
  5. FOSAMAX [Concomitant]
  6. ASPIRIN [Concomitant]

REACTIONS (1)
  - DECREASED APPETITE [None]
